FAERS Safety Report 9324497 (Version 1)
Quarter: 2013Q2

REPORT INFORMATION
  Report Type: Spontaneous
  Country: US (occurrence: None)
  Receive Date: 20130529
  Receipt Date: 20130529
  Transmission Date: 20140414
  Serious: Yes (Hospitalization)
  Sender: FDA-Public Use
  Company Number: TPA2013A04070

PATIENT
  Sex: 0

DRUGS (2)
  1. PIOGLITAZONE HYDROCHLORIDE [Suspect]
     Indication: CARDIOVASCULAR EVENT PROPHYLAXIS
  2. PIOGLITAZONE HYDROCHLORIDE [Suspect]
     Indication: CARDIOVASCULAR EVENT PROPHYLAXIS

REACTIONS (6)
  - Fall [None]
  - Skull fracture [None]
  - Traumatic intracranial haemorrhage [None]
  - Subarachnoid haemorrhage [None]
  - Epistaxis [None]
  - Ear haemorrhage [None]
